FAERS Safety Report 7157076-0 (Version None)
Quarter: 2010Q4

REPORT INFORMATION
  Report Type: 
  Country: None (occurrence: None)
  Receive Date: 20101214
  Receipt Date: 20100216
  Transmission Date: 20110411
  Serious: No
  Sender: FDA-Public Use
  Company Number: US-ASTRAZENECA-2009SE33688

PATIENT
  Age: 73 Year
  Sex: Male

DRUGS (10)
  1. CRESTOR [Suspect]
     Indication: BLOOD CHOLESTEROL INCREASED
     Route: 048
     Dates: start: 20091120, end: 20091201
  2. CRESTOR [Suspect]
     Route: 048
     Dates: start: 20091201
  3. CRESTOR [Suspect]
     Route: 048
  4. CRESTOR [Suspect]
     Route: 048
     Dates: start: 20091224
  5. TIMINOL [Concomitant]
  6. ALPHAGAN [Concomitant]
  7. AZOPT [Concomitant]
  8. PANTOPRAZOLE [Concomitant]
  9. AVANDIA [Concomitant]
  10. RAMIPRIL [Concomitant]

REACTIONS (6)
  - ABDOMINAL DISCOMFORT [None]
  - DYSPEPSIA [None]
  - MASS [None]
  - PARAESTHESIA [None]
  - PRURITUS [None]
  - THIRST [None]
